FAERS Safety Report 10414003 (Version 1)
Quarter: 2014Q3

REPORT INFORMATION
  Report Type: Spontaneous
  Country: DE (occurrence: None)
  Receive Date: 20140825
  Receipt Date: 20140825
  Transmission Date: 20150326
  Serious: Yes (Other)
  Sender: FDA-Public Use
  Company Number: 2014-20202

PATIENT
  Sex: Female

DRUGS (2)
  1. EYLEA [Suspect]
     Active Substance: AFLIBERCEPT
     Indication: MACULAR DEGENERATION
  2. RANIBIZUMAB [Concomitant]
     Active Substance: RANIBIZUMAB

REACTIONS (8)
  - Blindness transient [None]
  - Vitreous floaters [None]
  - Ocular hyperaemia [None]
  - Eye pain [None]
  - Vision blurred [None]
  - Eye irritation [None]
  - Dizziness postural [None]
  - Gastrointestinal disorder [None]
